FAERS Safety Report 8616231-0 (Version None)
Quarter: 2012Q3

REPORT INFORMATION
  Report Type: 
  Country: None (occurrence: None)
  Receive Date: 20120823
  Receipt Date: 20120815
  Transmission Date: 20120928
  Serious: Yes (Other)
  Sender: FDA-Public Use
  Company Number: US-ROCHE-1065319

PATIENT
  Sex: Female
  Weight: 52.21 kg

DRUGS (3)
  1. ACCUTANE [Suspect]
     Dates: start: 20000801, end: 20001001
  2. ACCUTANE [Suspect]
     Indication: PRODUCT USED FOR UNKNOWN INDICATION
     Dosage: IN EARLY 1980'S
  3. ACCUTANE [Suspect]
     Dosage: INTO 1990'S

REACTIONS (7)
  - DEPRESSION [None]
  - INTESTINAL HAEMORRHAGE [None]
  - INTESTINAL OBSTRUCTION [None]
  - IRRITABLE BOWEL SYNDROME [None]
  - MENTAL DISORDER [None]
  - INFLAMMATORY BOWEL DISEASE [None]
  - COLITIS ULCERATIVE [None]
